FAERS Safety Report 18732527 (Version 1)
Quarter: 2021Q1

REPORT INFORMATION
  Report Type: Spontaneous
  Country: US (occurrence: US)
  Receive Date: 20210112
  Receipt Date: 20210112
  Transmission Date: 20210419
  Serious: Yes (Hospitalization)
  Sender: FDA-Public Use
  Company Number: US-ELI_LILLY_AND_COMPANY-US202101000669

PATIENT
  Age: 63 Year
  Sex: Female
  Weight: 72.6 kg

DRUGS (1)
  1. BAMLANIVIMAB. [Suspect]
     Active Substance: BAMLANIVIMAB
     Indication: COVID-19
     Dosage: 700 MG, SINGLE
     Route: 042
     Dates: start: 20201219, end: 20201219

REACTIONS (8)
  - Dehydration [Unknown]
  - Nausea [Unknown]
  - Asthenia [Unknown]
  - Diarrhoea [Unknown]
  - Decreased appetite [Unknown]
  - Pyrexia [Unknown]
  - Vomiting [Unknown]
  - Cough [Unknown]

NARRATIVE: CASE EVENT DATE: 20201224
